FAERS Safety Report 6668591-8 (Version None)
Quarter: 2010Q2

REPORT INFORMATION
  Report Type: 
  Country: None (occurrence: None)
  Receive Date: 20100406
  Receipt Date: 20100329
  Transmission Date: 20101027
  Serious: Yes (Other)
  Sender: FDA-Public Use
  Company Number: SA-BRISTOL-MYERS SQUIBB COMPANY-15039704

PATIENT
  Age: 50 Year
  Sex: Male

DRUGS (4)
  1. CYCLOPHOSPHAMIDE [Suspect]
     Indication: LYMPHOMA
     Dosage: 1DF-750MG/M2 CYCLES - 6
     Route: 042
  2. DOXORUBICIN HCL [Suspect]
     Indication: LYMPHOMA
     Dosage: 1DF-50MG/M2
  3. VINCRISTINE SULFATE [Suspect]
     Indication: LYMPHOMA
     Dosage: 1 DF - 1.4MG/M2
  4. PREDNISONE TAB [Suspect]
     Indication: LYMPHOMA

REACTIONS (1)
  - GASTROSPLENIC FISTULA [None]
